FAERS Safety Report 9214524 (Version 3)
Quarter: 2013Q2

REPORT INFORMATION
  Report Type: Spontaneous
  Country: JP (occurrence: JP)
  Receive Date: 20130405
  Receipt Date: 20130530
  Transmission Date: 20140414
  Serious: Yes (Disabling)
  Sender: FDA-Public Use
  Company Number: JP-ROCHE-1201369

PATIENT
  Age: 81 Year
  Sex: Male
  Weight: 49 kg

DRUGS (6)
  1. TAMIFLU [Suspect]
     Indication: ANTIVIRAL PROPHYLAXIS
     Route: 048
     Dates: start: 20130223, end: 20130223
  2. BAYASPIRIN [Concomitant]
     Route: 048
     Dates: start: 20021026
  3. TAKEPRON [Concomitant]
     Indication: PROPHYLAXIS
     Route: 048
     Dates: start: 20120404
  4. TANKARU [Concomitant]
     Route: 048
     Dates: start: 20040210
  5. PURSENNID [Concomitant]
     Route: 048
     Dates: start: 20100301
  6. AMLODIN [Concomitant]
     Route: 048
     Dates: start: 20120706

REACTIONS (5)
  - Hypoacusis [Not Recovered/Not Resolved]
  - Dizziness [Recovered/Resolved]
  - Vomiting [Recovered/Resolved]
  - Nausea [Unknown]
  - Cerebral atrophy [Unknown]
